FAERS Safety Report 21570751 (Version 2)
Quarter: 2024Q2

REPORT INFORMATION
  Report Type: Spontaneous
  Country: US (occurrence: US)
  Receive Date: 20221109
  Receipt Date: 20240418
  Transmission Date: 20240716
  Serious: Yes (Death, Other)
  Sender: FDA-Public Use
  Company Number: US-MYLANLABS-2022M1120584

PATIENT
  Sex: Male
  Weight: 85.04 kg

DRUGS (2)
  1. VALSARTAN [Suspect]
     Active Substance: VALSARTAN
     Indication: Hypertension
     Dosage: UNK
     Route: 065
     Dates: start: 20200618, end: 20200916
  2. LOSARTAN [Suspect]
     Active Substance: LOSARTAN
     Indication: Product used for unknown indication
     Dosage: UNK
     Route: 065

REACTIONS (5)
  - Cardio-respiratory arrest [Fatal]
  - Pneumonia [Fatal]
  - Pancytopenia [Fatal]
  - Neoplasm malignant [Fatal]
  - Oesophageal carcinoma [Unknown]
